FAERS Safety Report 25869156 (Version 1)
Quarter: 2025Q3

REPORT INFORMATION
  Report Type: Spontaneous
  Country: US (occurrence: None)
  Receive Date: 20250930
  Receipt Date: 20250930
  Transmission Date: 20251020
  Serious: No
  Sender: FDA-CTU
  Company Number: None

PATIENT
  Age: 69 Year
  Sex: Male
  Weight: 90 kg

DRUGS (2)
  1. AMOXICILLIN\CLAVULANIC ACID [Suspect]
     Active Substance: AMOXICILLIN\CLAVULANIC ACID
     Indication: Diverticulitis
     Dosage: OTHER QUANTITY : 20 TABLET(S);?FREQUENCY : TWICE A DAY;?
     Route: 048
     Dates: start: 20250916, end: 20250926
  2. OMEPROZOL [Concomitant]

REACTIONS (12)
  - Influenza like illness [None]
  - Abdominal distension [None]
  - Decreased appetite [None]
  - Dyspepsia [None]
  - Nausea [None]
  - Chromaturia [None]
  - Headache [None]
  - Pruritus [None]
  - Thirst [None]
  - Injection site bruising [None]
  - Dyspnoea [None]
  - Fatigue [None]

NARRATIVE: CASE EVENT DATE: 20250926
